FAERS Safety Report 17589562 (Version 1)
Quarter: 2020Q1

REPORT INFORMATION
  Report Type: Spontaneous
  Country: LU (occurrence: LU)
  Receive Date: 20200327
  Receipt Date: 20200327
  Transmission Date: 20200409
  Serious: Yes (Life-Threatening)
  Sender: FDA-Public Use
  Company Number: LU-TEVA-2020-LU-1210074

PATIENT
  Age: 70 Year
  Sex: Male
  Weight: 59 kg

DRUGS (6)
  1. POLARAMINE [Concomitant]
     Active Substance: DEXCHLORPHENIRAMINE MALEATE
     Indication: PREMEDICATION
     Dosage: 5 MG 1 CYCLICAL
     Route: 042
     Dates: start: 20200227, end: 20200227
  2. KEYTRUDA [Concomitant]
     Active Substance: PEMBROLIZUMAB
     Indication: SQUAMOUS CELL CARCINOMA OF LUNG
     Dosage: 200 MG 1 CYCLICAL
     Route: 041
     Dates: start: 20200227, end: 20200227
  3. NETUPITANT, PALONOSETRON HYDROCHLORIDE [Concomitant]
     Indication: PREMEDICATION
     Dosage: 300 MG 1 CYCLICAL
     Route: 048
     Dates: start: 20200227, end: 20200227
  4. PACLITAXEL TEVA [Suspect]
     Active Substance: PACLITAXEL
     Indication: SQUAMOUS CELL CARCINOMA OF LUNG
     Dosage: 336.6 MG 1 CYCLICAL
     Route: 041
     Dates: start: 20200227, end: 20200227
  5. TAGAMET [Concomitant]
     Active Substance: CIMETIDINE
     Indication: PREMEDICATION
     Dosage: 400 MG 1 CYCLICAL
     Route: 048
     Dates: start: 20200227, end: 20200227
  6. FORTECORTIN 4 MG INJECT [Concomitant]
     Indication: PREMEDICATION
     Dosage: 4 MG 1 CYCLICAL
     Route: 042
     Dates: start: 20200227, end: 20200227

REACTIONS (5)
  - Loss of consciousness [Recovered/Resolved]
  - Dizziness [Recovered/Resolved]
  - Malaise [Recovered/Resolved]
  - Arrhythmia [Recovered/Resolved]
  - Syncope [Recovered/Resolved]

NARRATIVE: CASE EVENT DATE: 20200227
